FAERS Safety Report 11191098 (Version 1)
Quarter: 2015Q2

REPORT INFORMATION
  Report Type: Spontaneous
  Country: US (occurrence: US)
  Receive Date: 20150615
  Receipt Date: 20150615
  Transmission Date: 20150821
  Serious: Yes (Hospitalization)
  Sender: FDA-Public Use
  Company Number: US-ABBVIE-14P-163-1279011-00

PATIENT
  Age: 56 Year
  Sex: Female
  Weight: 86.71 kg

DRUGS (8)
  1. SYNTHROID [Interacting]
     Active Substance: LEVOTHYROXINE SODIUM
     Indication: HYPOTHYROIDISM
     Dosage: REDUCED
     Route: 065
  2. SYNTHROID [Interacting]
     Active Substance: LEVOTHYROXINE SODIUM
     Indication: HYPOTHYROIDISM
     Route: 065
  3. SYNTHROID [Suspect]
     Active Substance: LEVOTHYROXINE SODIUM
     Indication: HYPOTHYROIDISM
     Route: 065
     Dates: start: 20150529
  4. NARDIL [Interacting]
     Active Substance: PHENELZINE SULFATE
     Indication: PANIC DISORDER
     Route: 048
     Dates: start: 1986, end: 2001
  5. NARDIL [Interacting]
     Active Substance: PHENELZINE SULFATE
     Indication: AGORAPHOBIA
     Dosage: TOOK HALF OF A PILL
     Route: 048
     Dates: end: 201405
  6. SYNTHROID [Suspect]
     Active Substance: LEVOTHYROXINE SODIUM
     Indication: HYPOTHYROIDISM
     Route: 065
  7. SYNTHROID [Interacting]
     Active Substance: LEVOTHYROXINE SODIUM
     Indication: HYPOTHYROIDISM
     Route: 065
     Dates: start: 1999
  8. NARDIL [Interacting]
     Active Substance: PHENELZINE SULFATE
     Indication: ANXIETY
     Dosage: QUARTER OF THE PILL
     Route: 048
     Dates: start: 20141111, end: 20141115

REACTIONS (19)
  - Gait disturbance [Unknown]
  - Sleep disorder [Unknown]
  - Dizziness [Not Recovered/Not Resolved]
  - Therapy change [Unknown]
  - Vitamin D decreased [Not Recovered/Not Resolved]
  - Paraesthesia [Unknown]
  - Anxiety [Unknown]
  - Drug intolerance [Unknown]
  - Balance disorder [Unknown]
  - Nervousness [Unknown]
  - Adverse drug reaction [Unknown]
  - Drug interaction [Unknown]
  - Hypoglycaemia [Not Recovered/Not Resolved]
  - Withdrawal syndrome [Unknown]
  - Hypertension [Recovered/Resolved]
  - Tinnitus [Not Recovered/Not Resolved]
  - Feeling abnormal [Unknown]
  - Feeling jittery [Not Recovered/Not Resolved]
  - Feeling jittery [Unknown]

NARRATIVE: CASE EVENT DATE: 2014
